FAERS Safety Report 18844803 (Version 1)
Quarter: 2021Q1

REPORT INFORMATION
  Report Type: Report from Study
  Country: US (occurrence: US)
  Receive Date: 20210203
  Receipt Date: 20210203
  Transmission Date: 20210419
  Serious: No
  Sender: FDA-Public Use
  Company Number: US-EXELIXIS-CABO-20032662

PATIENT
  Age: 76 Year
  Sex: Male

DRUGS (2)
  1. CABOMETYX [Suspect]
     Active Substance: CABOZANTINIB S-MALATE
     Dosage: 40 MG, TWO DAYS ON, ONE DAY OFF
     Dates: start: 20200909
  2. CABOMETYX [Suspect]
     Active Substance: CABOZANTINIB S-MALATE
     Indication: RENAL CELL CARCINOMA
     Dosage: 40 MG
     Dates: start: 20200729

REACTIONS (10)
  - Dysphonia [Unknown]
  - Genital infection fungal [Unknown]
  - Blood pressure increased [Not Recovered/Not Resolved]
  - Dry eye [Not Recovered/Not Resolved]
  - Skin disorder [Recovering/Resolving]
  - Eye pruritus [Recovering/Resolving]
  - Decubitus ulcer [Recovering/Resolving]
  - Inappropriate schedule of product administration [Unknown]
  - Constipation [Recovering/Resolving]
  - Palmar-plantar erythrodysaesthesia syndrome [Recovering/Resolving]

NARRATIVE: CASE EVENT DATE: 20200909
